FAERS Safety Report 18261060 (Version 6)
Quarter: 2021Q1

REPORT INFORMATION
  Report Type: Report from Study
  Country: GR (occurrence: GR)
  Receive Date: 20200914
  Receipt Date: 20210107
  Transmission Date: 20210419
  Serious: Yes (Hospitalization, Other)
  Sender: FDA-Public Use
  Company Number: GR-AEGERION PHARMACEUTICAL, INC-AEGR004808

PATIENT

DRUGS (13)
  1. OMEGA?3 [DOCOSAHEXAENOIC ACID;EICOSAPENTAENOIC ACID] [Suspect]
     Active Substance: DOCONEXENT\ICOSAPENT
     Indication: SUPPLEMENTATION THERAPY
     Dosage: 1 DOSAGE FORM, QD
     Route: 048
     Dates: start: 20200104
  2. VITAMIN E                          /00110501/ [Suspect]
     Active Substance: TOCOPHEROL
     Indication: SUPPLEMENTATION THERAPY
     Dosage: 268 MILLIGRAM, QD
     Route: 048
     Dates: start: 20200104
  3. LOJUXTA AMRYT [Suspect]
     Active Substance: LOMITAPIDE MESYLATE
     Dosage: 10 MG, QD
     Route: 048
     Dates: start: 20200407
  4. LOPRESOR                           /00376902/ [Concomitant]
     Active Substance: METOPROLOL TARTRATE
     Indication: PRODUCT USED FOR UNKNOWN INDICATION
     Dosage: UNK
  5. SINTROM [Concomitant]
     Active Substance: ACENOCOUMAROL
     Indication: PRODUCT USED FOR UNKNOWN INDICATION
     Dosage: UNK
  6. LOJUXTA AMRYT [Suspect]
     Active Substance: LOMITAPIDE MESYLATE
     Dosage: 20 MG, QD
     Route: 048
     Dates: start: 20200621
  7. PLAVIX [Concomitant]
     Active Substance: CLOPIDOGREL BISULFATE
     Indication: PRODUCT USED FOR UNKNOWN INDICATION
     Dosage: UNK
  8. LOJUXTA AMRYT [Suspect]
     Active Substance: LOMITAPIDE MESYLATE
     Indication: TYPE IIA HYPERLIPIDAEMIA
     Dosage: 20 MG, QD
     Route: 048
     Dates: start: 20200104
  9. OMEGA?3?ACID ETHYL ESTER [Suspect]
     Active Substance: OMEGA-3-ACID ETHYL ESTERS
     Indication: SUPPLEMENTATION THERAPY
     Dosage: 1 DOSAGE FORM, QD
     Route: 048
     Dates: start: 20200104
  10. OMEGA?3 MARINE TRIGLYCERIDES [Suspect]
     Active Substance: OMEGA-3-ACID ETHYL ESTERS
     Indication: SUPPLEMENTATION THERAPY
     Dosage: 1 DOSAGE FORM, QD
     Route: 048
     Dates: start: 20200104
  11. SALOSPIR [Concomitant]
     Active Substance: ASPIRIN
     Indication: PRODUCT USED FOR UNKNOWN INDICATION
     Dosage: UNK
  12. LEXOTANIL [Concomitant]
     Active Substance: BROMAZEPAM
     Indication: PRODUCT USED FOR UNKNOWN INDICATION
     Dosage: UNK
  13. TETRAM                             /00001702/ [Concomitant]
     Indication: PRODUCT USED FOR UNKNOWN INDICATION
     Dosage: UNK

REACTIONS (14)
  - Diet noncompliance [Unknown]
  - Diarrhoea [Recovered/Resolved with Sequelae]
  - Abdominal distension [Recovered/Resolved]
  - Intentional dose omission [Unknown]
  - Haematocrit decreased [Unknown]
  - Abdominal mass [Unknown]
  - Gastric polyps [Unknown]
  - Asthenia [Recovered/Resolved]
  - Anaemia [Unknown]
  - Gastrointestinal inflammation [Unknown]
  - Lower gastrointestinal haemorrhage [Unknown]
  - Dizziness [Recovered/Resolved]
  - Diarrhoea [Recovered/Resolved]
  - Flatulence [Recovered/Resolved]

NARRATIVE: CASE EVENT DATE: 20200408
